FAERS Safety Report 6616945-8 (Version None)
Quarter: 2010Q1

REPORT INFORMATION
  Report Type: 
  Country: None (occurrence: None)
  Receive Date: 20100301
  Receipt Date: 20100215
  Transmission Date: 20100710
  Serious: Yes (Hospitalization)
  Sender: FDA-Public Use
  Company Number: 1-21668578

PATIENT
  Age: 61 Year
  Sex: Male

DRUGS (6)
  1. METHADONE HCL [Suspect]
     Indication: BACK PAIN
  2. CIPROFLOXACIN [Suspect]
  3. VENLAFAXINE [Suspect]
     Dosage: 100 MG TWICE DAILY,
  4. HYDROMORPHONE HCL [Concomitant]
  5. OXYCODONE HCL [Concomitant]
  6. METOCLOPRAMIDE [Concomitant]

REACTIONS (6)
  - CEREBRAL ATROPHY [None]
  - CEREBRAL ISCHAEMIA [None]
  - CEREBRAL MICROANGIOPATHY [None]
  - CEREBRAL VENTRICLE DILATATION [None]
  - FALL [None]
  - SEROTONIN SYNDROME [None]
